FAERS Safety Report 6008960-2 (Version None)
Quarter: 2008Q4

REPORT INFORMATION
  Report Type: 
  Country: None (occurrence: None)
  Receive Date: 20081217
  Receipt Date: 20081023
  Transmission Date: 20090506
  Serious: No
  Sender: FDA-Public Use
  Company Number: US-AMGEN-KDL315275

PATIENT
  Sex: Male

DRUGS (4)
  1. ENBREL [Suspect]
     Indication: RHEUMATOID ARTHRITIS
     Route: 058
     Dates: start: 20080508
  2. SULFASALAZINE [Concomitant]
     Dates: start: 20061001
  3. METHOTREXATE [Concomitant]
     Route: 048
     Dates: start: 20080904
  4. PLAQUENIL [Concomitant]
     Dates: start: 20060801

REACTIONS (3)
  - ABDOMINAL PAIN [None]
  - ARTHRALGIA [None]
  - NAUSEA [None]
